FAERS Safety Report 16751605 (Version 1)
Quarter: 2019Q3

REPORT INFORMATION
  Report Type: Spontaneous
  Country: RO (occurrence: RO)
  Receive Date: 20190828
  Receipt Date: 20190828
  Transmission Date: 20191005
  Serious: Yes (Other)
  Sender: FDA-Public Use
  Company Number: RO-INCYTE CORPORATION-2019IN008664

PATIENT

DRUGS (2)
  1. SUNITINIB [Suspect]
     Active Substance: SUNITINIB
     Indication: METASTATIC RENAL CELL CARCINOMA
     Dosage: 50 MG, QD
     Route: 065
  2. JAKAVI [Suspect]
     Active Substance: RUXOLITINIB
     Indication: MYELOFIBROSIS
     Dosage: 40 MG, QD
     Route: 065
     Dates: start: 201408, end: 201703

REACTIONS (6)
  - Anaemia [Unknown]
  - Disease recurrence [Unknown]
  - Pancytopenia [Unknown]
  - Thrombocytopenia [Unknown]
  - Metastases to lung [Unknown]
  - Renal cell carcinoma [Unknown]
